FAERS Safety Report 4984167-2 (Version None)
Quarter: 2006Q2

REPORT INFORMATION
  Report Type: 
  Country: None (occurrence: None)
  Receive Date: 20060427
  Receipt Date: 20060303
  Transmission Date: 20061013
  Serious: Yes (Other)
  Sender: FDA-Public Use
  Company Number: NL-BRISTOL-MYERS SQUIBB COMPANY-13302989

PATIENT
  Age: 48 Year
  Sex: Female

DRUGS (5)
  1. CARBOPLATIN [Suspect]
     Indication: NON-SMALL CELL LUNG CANCER
     Route: 042
     Dates: start: 20060127, end: 20060127
  2. DOCETAXEL [Suspect]
     Indication: NON-SMALL CELL LUNG CANCER
     Route: 042
     Dates: start: 20060127, end: 20060127
  3. BLINDED: CELECOXIB [Suspect]
     Route: 048
  4. BLINDED: PLACEBO [Suspect]
     Route: 048
  5. PAROXETINE HCL [Concomitant]
     Route: 048

REACTIONS (2)
  - EPILEPSY [None]
  - METASTASES TO CENTRAL NERVOUS SYSTEM [None]
